FAERS Safety Report 4791640-9 (Version None)
Quarter: 2005Q4

REPORT INFORMATION
  Report Type: 
  Country: None (occurrence: None)
  Receive Date: 20051005
  Receipt Date: 20050920
  Transmission Date: 20060501
  Serious: Yes (Hospitalization)
  Sender: FDA-Public Use
  Company Number: ST-2005-008624

PATIENT
  Age: 74 Year
  Sex: Male
  Weight: 62.5 kg

DRUGS (8)
  1. OLMETEC [Suspect]
     Indication: ESSENTIAL HYPERTENSION
     Dosage: 10 MG QD PO
     Route: 048
     Dates: start: 20041209
  2. FASTIC [Suspect]
     Dosage: 90 MG TID PO
     Route: 048
     Dates: end: 20050719
  3. APOLAKEAT [Concomitant]
  4. PENLEIV [Concomitant]
  5. NORNICICAMIN [Concomitant]
  6. ROSEMORGEN [Concomitant]
  7. REVEASALT [Concomitant]
  8. ASPIRIN [Concomitant]

REACTIONS (1)
  - CEREBRAL INFARCTION [None]
